FAERS Safety Report 4438753-9 (Version None)
Quarter: 2004Q3

REPORT INFORMATION
  Report Type: 
  Country: None (occurrence: None)
  Receive Date: 20040830
  Receipt Date: 20030502
  Transmission Date: 20050211
  Serious: Yes (Hospitalization)
  Sender: FDA-Public Use
  Company Number: 2004UW17836

PATIENT
  Age: 78 Year
  Sex: Female

DRUGS (4)
  1. IRESSA [Suspect]
     Indication: NON-SMALL CELL LUNG CANCER
     Dosage: 250 MG QD PO
     Route: 048
     Dates: start: 20001222
  2. TAMOXIFEN CITRATE [Concomitant]
  3. TAXOL [Concomitant]
  4. CARBOPLATIN [Concomitant]

REACTIONS (2)
  - COLITIS ISCHAEMIC [None]
  - DEHYDRATION [None]
